FAERS Safety Report 7531326-0 (Version None)
Quarter: 2011Q2

REPORT INFORMATION
  Report Type: 
  Country: None (occurrence: None)
  Receive Date: 20110606
  Receipt Date: 20110606
  Transmission Date: 20111010
  Serious: No
  Sender: FDA-Public Use
  Company Number: None

PATIENT

DRUGS (2)
  1. BP8 COUGH SUSPENSION [Suspect]
  2. BP8 COUGH SYRUP [Suspect]

REACTIONS (1)
  - PRODUCT PHYSICAL ISSUE [None]
